FAERS Safety Report 11416366 (Version 1)
Quarter: 2015Q3

REPORT INFORMATION
  Report Type: Spontaneous
  Country: US (occurrence: US)
  Receive Date: 20150825
  Receipt Date: 20150825
  Transmission Date: 20151125
  Serious: Yes (Other)
  Sender: FDA-Public Use
  Company Number: US-PFIZER INC-2015277810

PATIENT
  Age: 77 Year
  Sex: Female
  Weight: 56 kg

DRUGS (2)
  1. PREMARIN [Suspect]
     Active Substance: ESTROGENS, CONJUGATED
     Indication: BLADDER DISORDER
  2. PREMARIN [Suspect]
     Active Substance: ESTROGENS, CONJUGATED
     Indication: VAGINAL DISORDER
     Dosage: ^HALF PATHWAY MARK, HALF^
     Dates: end: 2015

REACTIONS (4)
  - Eye disorder [Unknown]
  - Induration [Unknown]
  - Blood glucose increased [Recovering/Resolving]
  - Intentional product misuse [Unknown]

NARRATIVE: CASE EVENT DATE: 2015
